FAERS Safety Report 7715840-0 (Version None)
Quarter: 2011Q3

REPORT INFORMATION
  Report Type: 
  Country: None (occurrence: None)
  Receive Date: 20110829
  Receipt Date: 20110829
  Transmission Date: 20111222
  Serious: No
  Sender: FDA-Public Use
  Company Number: None

PATIENT

DRUGS (1)
  1. PACERONE [Suspect]
     Indication: CARDIAC DISORDER
     Dosage: 200 MG
     Dates: start: 20100510, end: 20110511

REACTIONS (5)
  - DEPRESSED LEVEL OF CONSCIOUSNESS [None]
  - LIVER FUNCTION TEST ABNORMAL [None]
  - FATIGUE [None]
  - HYPERSOMNIA [None]
  - DYSPNOEA [None]
